FAERS Safety Report 6235017-8 (Version None)
Quarter: 2009Q2

REPORT INFORMATION
  Report Type: 
  Country: None (occurrence: None)
  Receive Date: 20090618
  Receipt Date: 20090605
  Transmission Date: 20091009
  Serious: Yes (Death, Hospitalization)
  Sender: FDA-Public Use
  Company Number: SE-ELI_LILLY_AND_COMPANY-SE200906001627

PATIENT
  Age: 40 Year
  Sex: Male

DRUGS (9)
  1. ZYPREXA [Suspect]
  2. ABILIFY [Concomitant]
     Indication: PSYCHOTIC DISORDER
     Dosage: 5 MG, DAILY (1/D)
     Route: 048
     Dates: start: 20061127
  3. ABILIFY [Concomitant]
     Dosage: 10 MG, UNK
  4. PROPAVAN [Concomitant]
     Dates: start: 20080601
  5. NOZINAN [Concomitant]
     Dates: start: 20080601
  6. IMOVANE [Concomitant]
     Dates: start: 20080601
  7. XANOR [Concomitant]
     Dosage: 1 MG, UNK
     Dates: start: 20080601
  8. XANOR [Concomitant]
     Dosage: 2 MG, UNK
  9. PAROXETINE HCL [Concomitant]
     Dates: start: 20080601

REACTIONS (6)
  - AGGRESSION [None]
  - ANXIETY [None]
  - DEATH [None]
  - DELUSIONAL DISORDER, PERSECUTORY TYPE [None]
  - RESTLESSNESS [None]
  - SEXUAL DYSFUNCTION [None]
